FAERS Safety Report 5061445-2 (Version None)
Quarter: 2006Q3

REPORT INFORMATION
  Report Type: 
  Country: None (occurrence: None)
  Receive Date: 20060719
  Receipt Date: 20060719
  Transmission Date: 20061208
  Serious: Yes (Hospitalization)
  Sender: FDA-Public Use
  Company Number: None

PATIENT
  Age: 66 Year
  Sex: Male

DRUGS (2)
  1. MITOXANTRONE [Suspect]
     Indication: NEOPLASM MALIGNANT
     Dosage: 20 MG ONCE
     Dates: start: 20060508
  2. FLUDARABINE [Suspect]
     Indication: NEOPLASM MALIGNANT
     Dosage: 50 MG QD
     Dates: start: 20060508

REACTIONS (1)
  - FEBRILE NEUTROPENIA [None]
